FAERS Safety Report 6184532-4 (Version None)
Quarter: 2009Q2

REPORT INFORMATION
  Report Type: 
  Country: None (occurrence: None)
  Receive Date: 20090508
  Receipt Date: 20090427
  Transmission Date: 20091009
  Serious: Yes (Other)
  Sender: FDA-Public Use
  Company Number: US-JNJFOC-20090301578

PATIENT
  Sex: Female
  Weight: 69.4 kg

DRUGS (15)
  1. REMICADE [Suspect]
     Route: 042
  2. REMICADE [Suspect]
     Indication: RHEUMATOID ARTHRITIS
     Route: 042
  3. VOLTAREN [Concomitant]
     Route: 048
  4. OSCAL+VITAMIN D [Concomitant]
  5. DARVOCET-N 100 [Concomitant]
     Dosage: 1 TABLET EVERY 4 TO 6 HOURS
     Route: 048
  6. PRILOSEC [Concomitant]
  7. ALLEGRA D24 [Concomitant]
     Route: 048
  8. AMITRIPTYLINE HCL [Concomitant]
     Route: 048
  9. KENALOG [Concomitant]
     Dosage: APPLY TWICE A DAY
  10. MEDROL ACETATE [Concomitant]
  11. PLAQUENIL [Concomitant]
     Route: 048
  12. PROTONIX NOS [Concomitant]
     Route: 048
  13. VIVELLE-DOT [Concomitant]
     Dosage: .025MG/24HOURS AS DIRECTED
  14. CURAMIN [Concomitant]
     Indication: ANALGESIA
  15. ULTRAM [Concomitant]
     Route: 048

REACTIONS (8)
  - BACK PAIN [None]
  - CERUMEN IMPACTION [None]
  - COUGH [None]
  - DRY MOUTH [None]
  - HEADACHE [None]
  - LUPUS-LIKE SYNDROME [None]
  - RHINITIS [None]
  - URTICARIA [None]
